FAERS Safety Report 7629473-8 (Version None)
Quarter: 2011Q3

REPORT INFORMATION
  Report Type: 
  Country: None (occurrence: None)
  Receive Date: 20110722
  Receipt Date: 20110714
  Transmission Date: 20111222
  Serious: Yes (Other)
  Sender: FDA-Public Use
  Company Number: US-BAYER-2011-061892

PATIENT
  Age: 33 Year
  Sex: Female

DRUGS (3)
  1. DROSPERINONE/ETHINYL ESTRADIOL [Suspect]
     Dosage: UNK
     Dates: start: 20100601, end: 20101101
  2. YAZ [Suspect]
     Dosage: UNK
     Dates: start: 20080401, end: 20100501
  3. YASMIN [Suspect]
     Dosage: UNK
     Dates: start: 20070901, end: 20071001

REACTIONS (1)
  - DEEP VEIN THROMBOSIS [None]
